FAERS Safety Report 7312143-3 (Version None)
Quarter: 2011Q1

REPORT INFORMATION
  Report Type: 
  Country: None (occurrence: None)
  Receive Date: 20110224
  Receipt Date: 20110217
  Transmission Date: 20110831
  Serious: Yes (Other)
  Sender: FDA-Public Use
  Company Number: B0701704A

PATIENT
  Age: 49 Year
  Sex: Female

DRUGS (1)
  1. ALLI [Suspect]
     Dosage: 60MG TWICE PER DAY
     Route: 065

REACTIONS (4)
  - JOINT SWELLING [None]
  - PRURITUS [None]
  - ARTHRALGIA [None]
  - HYPERSENSITIVITY [None]
